FAERS Safety Report 8238081-X (Version None)
Quarter: 2012Q1

REPORT INFORMATION
  Report Type: 
  Country: None (occurrence: None)
  Receive Date: 20120327
  Receipt Date: 20120323
  Transmission Date: 20120608
  Serious: Yes (Hospitalization)
  Sender: FDA-Public Use
  Company Number: GB-GLAXOSMITHKLINE-B0782985A

PATIENT
  Sex: Male

DRUGS (2)
  1. VOTRIENT [Suspect]
     Indication: RENAL CELL CARCINOMA
     Dosage: 800MG PER DAY
     Route: 048
     Dates: start: 20110502
  2. BENDROFLUAZIDE [Concomitant]
     Dosage: 2.5MG PER DAY
     Route: 065

REACTIONS (2)
  - HYPERTENSION [None]
  - ACCIDENTAL OVERDOSE [None]
